FAERS Safety Report 5056200-3 (Version None)
Quarter: 2006Q3

REPORT INFORMATION
  Report Type: 
  Country: None (occurrence: None)
  Receive Date: 20060717
  Receipt Date: 20060706
  Transmission Date: 20061208
  Serious: Yes (Other)
  Sender: FDA-Public Use
  Company Number: 2006084424

PATIENT

DRUGS (1)
  1. SILDENAFIL (PAH) (SILDENAFIL) [Suspect]
     Indication: PULMONARY HYPERTENSION
     Dosage: ORAL
     Route: 048

REACTIONS (3)
  - HAEMATURIA [None]
  - PROTEINURIA [None]
  - TUBULOINTERSTITIAL NEPHRITIS [None]
